FAERS Safety Report 8595201-5 (Version None)
Quarter: 2012Q3

REPORT INFORMATION
  Report Type: 
  Country: None (occurrence: None)
  Receive Date: 20120807
  Receipt Date: 20120807
  Transmission Date: 20120928
  Serious: Yes (Hospitalization)
  Sender: FDA-Public Use
  Company Number: None

PATIENT
  Sex: Male
  Weight: 123 kg

DRUGS (4)
  1. BEVACIZUMAB (RHUMAB VEGF) [Suspect]
     Dosage: 1940 MG
  2. PEMETREXED [Suspect]
     Dosage: 1195 MG
  3. METOPROLOL TARTRATE [Concomitant]
  4. LOSARTAN POTASSIUM [Concomitant]

REACTIONS (3)
  - DYSPNOEA [None]
  - HAEMOPTYSIS [None]
  - PYREXIA [None]
